FAERS Safety Report 4476591-1 (Version None)
Quarter: 2004Q4

REPORT INFORMATION
  Report Type: 
  Country: None (occurrence: None)
  Receive Date: 20041013
  Receipt Date: 20040923
  Transmission Date: 20050328
  Serious: Yes (Hospitalization, Other)
  Sender: FDA-Public Use
  Company Number: USA030947768

PATIENT
  Age: 73 Year
  Sex: Female
  Weight: 41 kg

DRUGS (12)
  1. FORTEO [Suspect]
     Indication: OSTEOPOROSIS
     Dosage: 20 UG/1 DAY
     Dates: start: 20030301
  2. AMBIEN [Concomitant]
  3. KLONOPIN [Concomitant]
  4. VITAMIN D [Concomitant]
  5. OSCAL 500-D [Concomitant]
  6. CLONIDINE HCL [Concomitant]
  7. DARVOCET-N 100 [Concomitant]
  8. CARDIZEM [Concomitant]
  9. VICODIN [Concomitant]
  10. MONOPRIL [Concomitant]
  11. VITAMIN E [Concomitant]
  12. VITAMIN C [Concomitant]

REACTIONS (9)
  - BLOOD CALCIUM INCREASED [None]
  - FATIGUE [None]
  - FEMORAL ARTERY OCCLUSION [None]
  - FRACTURE [None]
  - JOINT SWELLING [None]
  - OEDEMA PERIPHERAL [None]
  - PAIN EXACERBATED [None]
  - PAIN IN EXTREMITY [None]
  - RIB FRACTURE [None]
